FAERS Safety Report 5032704-4 (Version None)
Quarter: 2006Q2

REPORT INFORMATION
  Report Type: 
  Country: None (occurrence: None)
  Receive Date: 20060620
  Receipt Date: 20060620
  Transmission Date: 20061013
  Serious: Yes (Hospitalization)
  Sender: FDA-Public Use
  Company Number: None

PATIENT
  Age: 66 Year
  Sex: Male
  Weight: 72.6 kg

DRUGS (8)
  1. SULFAMETHOXAZOLE + TRIMETHOPRIM [Suspect]
     Indication: URINARY TRACT INFECTION
     Dosage: SEPTRA D.S. PO BID
     Route: 048
     Dates: start: 20060616, end: 20060618
  2. IBUPROFEN [Concomitant]
  3. SENNOSIDES [Concomitant]
  4. BISACODYL [Concomitant]
  5. LACTULOSE [Concomitant]
  6. METHYLPHENIDATE HCL [Concomitant]
  7. GABAPENTIN [Concomitant]
  8. SYNTHROID [Concomitant]

REACTIONS (2)
  - ANOREXIA [None]
  - NAUSEA [None]
